FAERS Safety Report 6420368-4 (Version None)
Quarter: 2009Q4

REPORT INFORMATION
  Report Type: 
  Country: None (occurrence: None)
  Receive Date: 20091021
  Receipt Date: 20090527
  Transmission Date: 20100525
  Serious: No
  Sender: FDA-Public Use
  Company Number: ALL1-2009-01474

PATIENT
  Age: 39 Year
  Sex: Female
  Weight: 77.1 kg

DRUGS (2)
  1. VYVANSE [Suspect]
     Indication: ATTENTION DEFICIT/HYPERACTIVITY DISORDER
     Dosage: 40 MG, 1X/DAY;QD, ORAL
     Route: 048
     Dates: start: 20090427
  2. YAZ (GENERIC) (DROSPIRENONE, ETHINYLESTRADIOL) TABLET [Concomitant]

REACTIONS (1)
  - NIPPLE PAIN [None]
